FAERS Safety Report 8585597-2 (Version None)
Quarter: 2012Q3

REPORT INFORMATION
  Report Type: 
  Country: None (occurrence: None)
  Receive Date: 20120810
  Receipt Date: 20120809
  Transmission Date: 20120928
  Serious: Yes (Other)
  Sender: FDA-Public Use
  Company Number: AU-BAYER-2012-080420

PATIENT
  Sex: Female

DRUGS (2)
  1. CLOTRIMAZOLE [Suspect]
     Dosage: UNK
     Dates: start: 20120802, end: 20120807
  2. LEVLEN ED [Concomitant]
     Dosage: UNK
     Dates: start: 20100101

REACTIONS (1)
  - VAGINAL HAEMORRHAGE [None]
